FAERS Safety Report 10715851 (Version 2)
Quarter: 2015Q4

REPORT INFORMATION
  Report Type: Spontaneous
  Country: CA (occurrence: CA)
  Receive Date: 20150116
  Receipt Date: 20151210
  Transmission Date: 20160304
  Serious: Yes (Disabling)
  Sender: FDA-Public Use
  Company Number: CA-BAYER-2015-003986

PATIENT
  Age: 36 Year
  Sex: Female
  Weight: 102.49 kg

DRUGS (2)
  1. SYMBICORT [Concomitant]
     Active Substance: BUDESONIDE\FORMOTEROL FUMARATE DIHYDRATE
     Dosage: 200 PUFF(S), BID
  2. CIPROFLOXACIN. [Suspect]
     Active Substance: CIPROFLOXACIN
     Indication: URINARY TRACT INFECTION
     Dosage: 500 MG, BID
     Route: 048
     Dates: start: 20120306, end: 20120308

REACTIONS (5)
  - Dysphagia [None]
  - Eye disorder [None]
  - Nasal obstruction [None]
  - VIIth nerve paralysis [Not Recovered/Not Resolved]
  - Eating disorder [None]

NARRATIVE: CASE EVENT DATE: 20120308
